FAERS Safety Report 16744808 (Version 1)
Quarter: 2019Q3

REPORT INFORMATION
  Report Type: Spontaneous
  Country: US (occurrence: US)
  Receive Date: 20190827
  Receipt Date: 20190827
  Transmission Date: 20191005
  Serious: No
  Sender: FDA-Public Use
  Company Number: US-MYLANLABS-2019M1076904

PATIENT
  Age: 62 Year
  Sex: Female
  Weight: 67 kg

DRUGS (2)
  1. ESTRADIOL TRANSDERMAL SYSTEM [Suspect]
     Active Substance: ESTRADIOL
     Indication: MENOPAUSAL SYMPTOMS
     Dosage: 0.5 MG/DAY
     Route: 062
     Dates: start: 2019
  2. PROGESTERONE. [Concomitant]
     Active Substance: PROGESTERONE
     Dosage: UNK

REACTIONS (9)
  - Therapeutic product effect decreased [Not Recovered/Not Resolved]
  - Application site scab [Not Recovered/Not Resolved]
  - Hot flush [Not Recovered/Not Resolved]
  - Application site burn [Not Recovered/Not Resolved]
  - Application site pruritus [Recovering/Resolving]
  - Scar [Not Recovered/Not Resolved]
  - Application site erythema [Recovering/Resolving]
  - Drug ineffective [Not Recovered/Not Resolved]
  - Application site vesicles [Recovering/Resolving]

NARRATIVE: CASE EVENT DATE: 2019
